FAERS Safety Report 6647497-4 (Version None)
Quarter: 2010Q1

REPORT INFORMATION
  Report Type: 
  Country: None (occurrence: None)
  Receive Date: 20100323
  Receipt Date: 20100319
  Transmission Date: 20100710
  Serious: Yes (Hospitalization)
  Sender: FDA-Public Use
  Company Number: PL-ROCHE-691501

PATIENT
  Sex: Male
  Weight: 79 kg

DRUGS (3)
  1. PEG-INTERFERON ALFA 2A (RO 25-8310) [Suspect]
     Route: 058
     Dates: start: 20081017, end: 20090308
  2. RIBAVIRIN [Suspect]
     Route: 048
     Dates: start: 20081017, end: 20090508
  3. ATENOLOLUM [Concomitant]
     Dosage: INDICATION REPORTED AS HA.
     Route: 048
     Dates: start: 20020101

REACTIONS (2)
  - BRONCHOSPASM [None]
  - DYSPNOEA [None]
